FAERS Safety Report 15285375 (Version 1)
Quarter: 2018Q3

REPORT INFORMATION
  Report Type: Spontaneous
  Country: US (occurrence: US)
  Receive Date: 20180816
  Receipt Date: 20180816
  Transmission Date: 20181010
  Serious: No
  Sender: FDA-Public Use
  Company Number: US-GLAXOSMITHKLINE-US2018142555

PATIENT
  Age: 68 Year
  Sex: Female

DRUGS (1)
  1. TRANSDERM SCOP [Suspect]
     Active Substance: SCOPOLAMINE
     Indication: NAUSEA
     Dosage: UNK

REACTIONS (5)
  - Wrong technique in product usage process [Unknown]
  - Application site swelling [Unknown]
  - Drug hypersensitivity [Unknown]
  - Application site hypersensitivity [Unknown]
  - Product use in unapproved indication [Unknown]
